FAERS Safety Report 26194882 (Version 1)
Quarter: 2025Q4

REPORT INFORMATION
  Report Type: Spontaneous
  Country: US (occurrence: US)
  Receive Date: 20251224
  Receipt Date: 20251224
  Transmission Date: 20260118
  Serious: Yes (Other)
  Sender: GLAXOSMITHKLINE
  Company Number: US-GSK-US2025163384

PATIENT
  Sex: Female

DRUGS (4)
  1. VALTREX [Suspect]
     Active Substance: VALACYCLOVIR HYDROCHLORIDE
     Indication: Herpes virus infection
     Dosage: UNK UNK, QD, 1-500 MG, EVERY EVENING
  2. VALACYCLOVIR HYDROCHLORIDE [Suspect]
     Active Substance: VALACYCLOVIR HYDROCHLORIDE
     Indication: Herpes virus infection
     Dosage: UNK
  3. REPATHA [Suspect]
     Active Substance: EVOLOCUMAB
     Indication: Methylenetetrahydrofolate reductase gene mutation
     Dosage: 1 DF, EVERY OTHER WEEK, INJECTION
  4. LIPITOR [Concomitant]
     Active Substance: ATORVASTATIN CALCIUM
     Indication: Blood cholesterol abnormal
     Dosage: UNK UNK, QD, 1-10 MG

REACTIONS (3)
  - Cerebrovascular accident [Unknown]
  - Methylenetetrahydrofolate reductase gene mutation [Unknown]
  - Adverse drug reaction [Unknown]
